FAERS Safety Report 9295220 (Version 1)
Quarter: 2013Q2

REPORT INFORMATION
  Report Type: Spontaneous
  Country: US (occurrence: US)
  Receive Date: 20130516
  Receipt Date: 20130516
  Transmission Date: 20140414
  Serious: Yes (Other)
  Sender: FDA-Public Use
  Company Number: US-RB-053429-13

PATIENT
  Age: 0 None
  Sex: 0

DRUGS (12)
  1. SUBUTEX [Suspect]
     Indication: DRUG DEPENDENCE
     Route: 064
     Dates: start: 20121031, end: 20130414
  2. BUPRENORPHINE GENERIC [Suspect]
     Indication: DRUG DEPENDENCE
     Route: 064
  3. OXYCODONE [Suspect]
     Indication: PRODUCT USED FOR UNKNOWN INDICATION
     Dosage: UNKNOWN DOSING DETAILS
     Route: 064
  4. HEROIN [Suspect]
     Indication: PRODUCT USED FOR UNKNOWN INDICATION
     Dosage: UNKNOWN DOSING DETAILS
     Route: 064
  5. CODEINE [Suspect]
     Indication: PRODUCT USED FOR UNKNOWN INDICATION
     Dosage: UNKNOWN DOSING DETAILS
     Route: 064
  6. MORPHINE [Suspect]
     Indication: PRODUCT USED FOR UNKNOWN INDICATION
     Dosage: UNKNOWN DOSING DETAILS
     Route: 064
  7. MARIJUANA [Suspect]
     Indication: PRODUCT USED FOR UNKNOWN INDICATION
     Dosage: UNKNOWN DOSING DETAILS
     Route: 064
  8. PROMETHAZINE [Suspect]
     Indication: NAUSEA
     Dosage: AS NEEDED
     Route: 064
     Dates: start: 20121031, end: 20130414
  9. ALBUTEROL [Suspect]
     Indication: WHEEZING
     Dosage: DOSING DETAILS UNKNOWN
     Route: 064
     Dates: end: 20130414
  10. FLUTICASONE [Suspect]
     Indication: MULTIPLE ALLERGIES
     Dosage: DOSING DETAILS UNKNOWN
  11. NICOTINE [Suspect]
     Indication: PRODUCT USED FOR UNKNOWN INDICATION
     Dosage: 20 CIGARETTES DAILY
     Route: 064
     Dates: end: 20130414
  12. PRENATAL VITAMINS [Suspect]
     Indication: PREGNANCY
     Dosage: DOSING INFORMATION UNKNOWN
     Route: 064
     Dates: end: 20130414

REACTIONS (2)
  - Foetal exposure during pregnancy [Recovered/Resolved]
  - Premature baby [Recovered/Resolved]
